FAERS Safety Report 9565813 (Version 2)
Quarter: 2013Q4

REPORT INFORMATION
  Report Type: Report from Study
  Country: US (occurrence: US)
  Receive Date: 20130930
  Receipt Date: 20131004
  Transmission Date: 20140711
  Serious: Yes (Congenital Anomaly)
  Sender: FDA-Public Use
  Company Number: US-GILEAD-2013-0084083

PATIENT
  Sex: 0

DRUGS (6)
  1. TENOFOVIR DISOPROXIL FUMARATE [Suspect]
     Indication: HIV INFECTION
     Dosage: 300 MG, QD
     Route: 065
  2. PREZISTA [Suspect]
     Indication: HIV INFECTION
     Dosage: 1 DF, QD
     Route: 064
  3. LEXIVA [Suspect]
     Indication: HIV INFECTION
     Dosage: 2800 MG, QD
     Route: 064
  4. ZIDOVUDINE [Suspect]
     Indication: HIV INFECTION
     Dosage: 600 MG, QD
     Route: 064
  5. LAMIVUDINE + ZIDOVUDINE [Suspect]
     Indication: HIV INFECTION
     Dosage: 2 DF, QD
     Route: 064
  6. NORVIR [Suspect]
     Indication: HIV INFECTION
     Dosage: 100 MG, QD
     Route: 064

REACTIONS (2)
  - Micrognathia [Unknown]
  - Foetal exposure during pregnancy [Recovered/Resolved]
